FAERS Safety Report 9327786 (Version 2)
Quarter: 2013Q3

REPORT INFORMATION
  Report Type: Spontaneous
  Country: US (occurrence: US)
  Receive Date: 20130604
  Receipt Date: 20130708
  Transmission Date: 20140515
  Serious: No
  Sender: FDA-Public Use
  Company Number: US-AMGEN-USASP2013036666

PATIENT
  Age: 62 Year
  Sex: Female
  Weight: 75.74 kg

DRUGS (7)
  1. ENBREL [Suspect]
     Indication: RHEUMATOID ARTHRITIS
     Dosage: 50 MG, QWK
     Route: 058
     Dates: start: 201305
  2. METHOTREXATE [Concomitant]
     Dosage: 20 MG, QWK
     Route: 048
     Dates: start: 2011
  3. FOLIC ACID [Concomitant]
     Dosage: UNK
  4. EVISTA [Concomitant]
     Dosage: UNK
  5. NEURONTIN [Concomitant]
     Dosage: UNK
  6. PROZAC [Concomitant]
     Dosage: UNK
  7. MELOXICAM [Concomitant]
     Dosage: UNK

REACTIONS (1)
  - Bronchitis [Not Recovered/Not Resolved]
